FAERS Safety Report 15887754 (Version 1)
Quarter: 2019Q1

REPORT INFORMATION
  Report Type: Other
  Country: GR (occurrence: GR)
  Receive Date: 20190130
  Receipt Date: 20190130
  Transmission Date: 20190417
  Serious: Yes (Hospitalization)
  Sender: FDA-Public Use
  Company Number: GR-GUARDIAN DRUG COMPANY-2061909

PATIENT
  Age: 70 Year
  Sex: Female

DRUGS (4)
  1. LEVOFLOXACIN. [Concomitant]
     Active Substance: LEVOFLOXACIN
     Route: 065
  2. LEVOTHYROXINE. [Concomitant]
     Active Substance: LEVOTHYROXINE
     Route: 048
  3. CHILDRENS IBUPROFEN [Suspect]
     Active Substance: IBUPROFEN
     Indication: PERICARDITIS
     Route: 065
  4. COLCHICINE. [Suspect]
     Active Substance: COLCHICINE
     Route: 065

REACTIONS (1)
  - Acute kidney injury [Unknown]
